FAERS Safety Report 6691732 (Version 20)
Quarter: 2014Q2

REPORT INFORMATION
  Report Type: Spontaneous
  Country: US (occurrence: US)
  Receive Date: 20080707
  Receipt Date: 20140627
  Transmission Date: 20141212
  Serious: Yes (Hospitalization, Other)
  Sender: FDA-Public Use
  Company Number: PHEH2008US05677

PATIENT
  Age: 53 Year
  Sex: Female

DRUGS (25)
  1. AREDIA [Suspect]
     Indication: METASTASES TO BONE
     Dosage: 80 MG, QMO
     Route: 042
     Dates: start: 1997, end: 20051221
  2. AREDIA [Suspect]
     Indication: BREAST CANCER METASTATIC
     Dosage: 90 MG
     Route: 042
  3. AREDIA [Suspect]
     Indication: BONE LOSS
     Dosage: 90 MG, QMO
     Route: 042
     Dates: start: 20060914, end: 20070626
  4. ZOMETA [Suspect]
     Dosage: 4 MG, QMO
     Route: 042
     Dates: start: 20060511, end: 20060810
  5. ACETAMINOPHEN [Concomitant]
  6. CODEINE [Concomitant]
  7. FEMARA [Concomitant]
     Dosage: 2.5 MG, QD
  8. LUNESTA [Concomitant]
  9. LORTAB [Concomitant]
  10. CARAFATE [Concomitant]
  11. ZOFRAN [Concomitant]
  12. ZOLOFT (SERTRALINE HYDROCHLORIDE) [Concomitant]
  13. LISINOPRIL [Concomitant]
  14. METOPROLOL [Concomitant]
  15. CRESTOR [Concomitant]
  16. MULTIVITAMINS [Concomitant]
     Route: 048
  17. COLACE [Concomitant]
     Dosage: 200 MG, QHS
  18. ZOCOR [Concomitant]
     Dosage: 40 MG
     Route: 048
  19. LOPRESSOR [Concomitant]
     Indication: BLOOD PRESSURE
     Dosage: 50 MG, Q12H
  20. PRILOSEC [Concomitant]
     Dosage: 20 MG
     Route: 048
  21. SENOKOT [Concomitant]
     Route: 048
  22. CLONIDINE [Concomitant]
     Indication: BLOOD PRESSURE
     Dosage: 0.2 MG, Q12H
  23. TYLENOL [Concomitant]
     Route: 048
  24. FLOMAX [Concomitant]
  25. LEVAQUIN [Concomitant]

REACTIONS (163)
  - Arthralgia [Unknown]
  - Mastitis [Unknown]
  - Gastroenteritis viral [Unknown]
  - Dehydration [Unknown]
  - Osteonecrosis of jaw [Unknown]
  - Injury [Unknown]
  - Pain [Unknown]
  - Oral candidiasis [Unknown]
  - Anxiety [Unknown]
  - Osteosclerosis [Unknown]
  - Physical disability [Unknown]
  - Loose tooth [Unknown]
  - Exposed bone in jaw [Unknown]
  - Intervertebral disc degeneration [Unknown]
  - Facet joint syndrome [Unknown]
  - Spinal osteoarthritis [Unknown]
  - Rib fracture [Unknown]
  - Spondylolisthesis [Unknown]
  - Back pain [Unknown]
  - Foot fracture [Unknown]
  - Oesophagitis [Unknown]
  - Dysphagia [Unknown]
  - Oesophageal pain [Unknown]
  - Oropharyngeal pain [Unknown]
  - Metastases to abdominal cavity [Unknown]
  - Pollakiuria [Unknown]
  - Osteopenia [Unknown]
  - Neuralgia [Unknown]
  - Metastases to spine [Unknown]
  - Metastases to bone [Unknown]
  - Hepatic calcification [Unknown]
  - Hepatic steatosis [Unknown]
  - Hypercholesterolaemia [Unknown]
  - Depression [Unknown]
  - Arthritis [Unknown]
  - Cellulitis [Unknown]
  - Radiculitis [Unknown]
  - Vertebral foraminal stenosis [Unknown]
  - Thoracic vertebral fracture [Unknown]
  - Cervical spinal stenosis [Unknown]
  - Renal cyst [Unknown]
  - Lumbar spine flattening [Unknown]
  - Gait disturbance [Unknown]
  - Hyperlipidaemia [Unknown]
  - Pulmonary fibrosis [Unknown]
  - Arteriosclerosis [Unknown]
  - Neuropathy peripheral [Unknown]
  - Calculus ureteric [Unknown]
  - Haematuria [Unknown]
  - Mitral valve incompetence [Unknown]
  - Tricuspid valve incompetence [Unknown]
  - Pericardial effusion [Unknown]
  - Cerebral atrophy [Unknown]
  - Hepatic lesion [Unknown]
  - Hypoaesthesia [Unknown]
  - Contusion [Unknown]
  - Faecal incontinence [Unknown]
  - Constipation [Unknown]
  - Arrhythmia [Unknown]
  - Cholelithiasis [Unknown]
  - Nausea [Unknown]
  - Retching [Unknown]
  - Fatigue [Unknown]
  - Vulvovaginal dryness [Unknown]
  - Hot flush [Unknown]
  - Dyspnoea [Unknown]
  - Groin pain [Unknown]
  - Cough [Unknown]
  - Diarrhoea [Unknown]
  - Gastrooesophageal reflux disease [Unknown]
  - Abdominal pain upper [Unknown]
  - Abdominal discomfort [Unknown]
  - Bronchitis [Unknown]
  - Vomiting [Unknown]
  - Mouth ulceration [Unknown]
  - Hyperaesthesia [Unknown]
  - Muscle spasms [Unknown]
  - Decreased appetite [Unknown]
  - Muscular weakness [Unknown]
  - Scoliosis [Unknown]
  - Visual impairment [Unknown]
  - Neck pain [Unknown]
  - Ingrowing nail [Unknown]
  - Syncope [Unknown]
  - Metastases to pleura [Unknown]
  - Metastases to liver [Unknown]
  - Insomnia [Unknown]
  - Arthropathy [Unknown]
  - Arteriosclerosis coronary artery [Unknown]
  - Spinal column stenosis [Unknown]
  - Intervertebral disc space narrowing [Unknown]
  - Scapula fracture [Unknown]
  - Rotator cuff syndrome [Unknown]
  - Tendon disorder [Unknown]
  - Intervertebral disc displacement [Unknown]
  - Arthritis infective [Unknown]
  - Haematoma [Unknown]
  - Radicular syndrome [Unknown]
  - Abscess [Unknown]
  - Aortic arteriosclerosis [Unknown]
  - Sepsis [Unknown]
  - Myocardial ischaemia [Unknown]
  - Malignant hypertension [Unknown]
  - Left ventricular hypertrophy [Unknown]
  - Diastolic dysfunction [Unknown]
  - Hydroureter [Unknown]
  - Pleural effusion [Unknown]
  - Hypokalaemia [Unknown]
  - Pyelonephritis [Unknown]
  - Urinary tract infection [Unknown]
  - Rib deformity [Unknown]
  - Pathological fracture [Unknown]
  - Lumbar radiculopathy [Unknown]
  - Sacroiliitis [Unknown]
  - Carpal tunnel syndrome [Unknown]
  - Diabetes mellitus [Unknown]
  - Dental caries [Unknown]
  - Cholecystitis [Unknown]
  - Tooth fracture [Unknown]
  - Brain neoplasm malignant [Unknown]
  - Musculoskeletal chest pain [Unknown]
  - Burning sensation [Unknown]
  - Paraesthesia [Unknown]
  - Chronic gastritis [Unknown]
  - Hypotension [Unknown]
  - Fibromyalgia [Unknown]
  - Femur fracture [Unknown]
  - Fibrosis [Unknown]
  - Atelectasis [Unknown]
  - Palpitations [Unknown]
  - Hip fracture [Unknown]
  - Haemorrhage [Unknown]
  - Inflammation [Unknown]
  - Tooth loss [Unknown]
  - Limb injury [Unknown]
  - Upper respiratory tract infection [Unknown]
  - Vertigo [Unknown]
  - Mononeuritis [Unknown]
  - Arthropod bite [Unknown]
  - Bone lesion [Unknown]
  - Vertebral osteophyte [Unknown]
  - Oedema [Unknown]
  - Weight decreased [Unknown]
  - Perinephritis [Unknown]
  - Alveolar lung disease [Unknown]
  - Nodule [Unknown]
  - Tachycardia [Unknown]
  - Alopecia [Unknown]
  - Bone pain [Unknown]
  - Pain in extremity [Unknown]
  - Periodontal disease [Unknown]
  - Spinal muscular atrophy [Unknown]
  - Lung consolidation [Unknown]
  - Implant site extravasation [Unknown]
  - Uterine disorder [Unknown]
  - Oedema peripheral [Unknown]
  - Renal disorder [Unknown]
  - Chest pain [Unknown]
  - Bone disorder [Unknown]
  - Musculoskeletal discomfort [Unknown]
  - Musculoskeletal pain [Unknown]
  - Osteoarthritis [Unknown]
  - Bone marrow oedema [Unknown]
